FAERS Safety Report 4864268-X (Version None)
Quarter: 2005Q4

REPORT INFORMATION
  Report Type: 
  Country: None (occurrence: None)
  Receive Date: 20051221
  Receipt Date: 20051221
  Transmission Date: 20060501
  Serious: Yes (Other)
  Sender: FDA-Public Use
  Company Number: None

PATIENT
  Age: 72 Year
  Sex: Female
  Weight: 73.0291 kg

DRUGS (6)
  1. ADRIAMYCIN PFS [Suspect]
     Indication: BREAST CANCER
     Dosage: 108 MG IV
     Route: 042
     Dates: start: 20051024
  2. ADRIAMYCIN PFS [Suspect]
     Indication: BREAST CANCER
     Dosage: 108 MG IV
     Route: 042
     Dates: start: 20051114
  3. ADRIAMYCIN PFS [Suspect]
     Indication: BREAST CANCER
     Dosage: 108 MG IV
     Route: 042
     Dates: start: 20051205
  4. CYTOXAN [Suspect]
     Indication: BREAST CANCER
     Dosage: 1080 MG IV
     Route: 042
     Dates: start: 20051024
  5. CYTOXAN [Suspect]
     Indication: BREAST CANCER
     Dosage: 1080 MG IV
     Route: 042
     Dates: start: 20051114
  6. CYTOXAN [Suspect]
     Indication: BREAST CANCER
     Dosage: 1080 MG IV
     Route: 042
     Dates: start: 20051205

REACTIONS (1)
  - BLOOD CREATININE ABNORMAL [None]
